FAERS Safety Report 6152775-1 (Version None)
Quarter: 2009Q2

REPORT INFORMATION
  Report Type: 
  Country: None (occurrence: None)
  Receive Date: 20090409
  Receipt Date: 20090330
  Transmission Date: 20091009
  Serious: Yes (Hospitalization)
  Sender: FDA-Public Use
  Company Number: 2009SP006816

PATIENT
  Age: 62 Year
  Sex: Female
  Weight: 70.5 kg

DRUGS (5)
  1. NASONEX [Suspect]
     Indication: SINUS DISORDER
     Dosage: NAS
     Route: 045
     Dates: start: 20090101
  2. NIACIN [Concomitant]
  3. THYROID TAB [Concomitant]
  4. CYMBALTA [Concomitant]
  5. OMNARIS (CICLESONIDE) [Concomitant]

REACTIONS (2)
  - PRURITUS [None]
  - SARCOIDOSIS [None]
